FAERS Safety Report 16302234 (Version 1)
Quarter: 2019Q2

REPORT INFORMATION
  Report Type: Report from Study
  Country: None (occurrence: US)
  Receive Date: 20190512
  Receipt Date: 20190512
  Transmission Date: 20190711
  Serious: Yes (Other)
  Sender: FDA-Public Use
  Company Number: US-ABBVIE-19K-163-2777542-00

PATIENT
  Sex: Female

DRUGS (2)
  1. HUMIRA [Suspect]
     Active Substance: ADALIMUMAB
     Indication: PSORIASIS
     Dosage: HELD FOR ONE MONTH
     Route: 058
     Dates: start: 201804, end: 2018
  2. HUMIRA [Suspect]
     Active Substance: ADALIMUMAB
     Dosage: HELD FOR THREE WEEKS
     Route: 058
     Dates: start: 2018, end: 201904

REACTIONS (5)
  - Procedural haemorrhage [Unknown]
  - Nasopharyngitis [Unknown]
  - Asthenia [Recovering/Resolving]
  - Influenza like illness [Unknown]
  - Tooth extraction [Unknown]

NARRATIVE: CASE EVENT DATE: 2018
